FAERS Safety Report 12193679 (Version 6)
Quarter: 2018Q2

REPORT INFORMATION
  Report Type: Report from Study
  Country: CA (occurrence: CA)
  Receive Date: 20160321
  Receipt Date: 20180605
  Transmission Date: 20180711
  Serious: Yes (Other)
  Sender: FDA-Public Use
  Company Number: CA-ROCHE-ITM201502IM009904

PATIENT
  Age: 62 Year
  Sex: Female
  Weight: 52.3 kg

DRUGS (19)
  1. ESBRIET [Suspect]
     Active Substance: PIRFENIDONE
     Dosage: REDUCED DOSAGE
     Route: 048
  2. ELAVIL [Concomitant]
     Active Substance: AMITRIPTYLINE HYDROCHLORIDE
  3. MOTRIN [Concomitant]
     Active Substance: IBUPROFEN
  4. NORVASC [Concomitant]
     Active Substance: AMLODIPINE BESYLATE
  5. NEURONTIN [Concomitant]
     Active Substance: GABAPENTIN
  6. PAROXETINE. [Concomitant]
     Active Substance: PAROXETINE
  7. SYNTHROID [Concomitant]
     Active Substance: LEVOTHYROXINE SODIUM
  8. HYDROMORPH CONTIN [Concomitant]
     Active Substance: HYDROMORPHONE
  9. SYMBICORT [Concomitant]
     Active Substance: BUDESONIDE\FORMOTEROL FUMARATE DIHYDRATE
  10. ESBRIET [Suspect]
     Active Substance: PIRFENIDONE
     Indication: IDIOPATHIC PULMONARY FIBROSIS
     Route: 048
     Dates: start: 20150205
  11. LIPITOR [Concomitant]
     Active Substance: ATORVASTATIN CALCIUM
  12. PANTOLOC [Concomitant]
     Active Substance: PANTOPRAZOLE SODIUM
  13. MOTILIUM [Concomitant]
     Active Substance: DOMPERIDONE
  14. CODEINE [Concomitant]
     Active Substance: CODEINE
  15. EPIPEN [Concomitant]
     Active Substance: EPINEPHRINE
     Dosage: FREQUENCY- AS REQUIRED
     Route: 065
  16. LOSARTAN. [Concomitant]
     Active Substance: LOSARTAN
  17. ONGLYZA [Concomitant]
     Active Substance: SAXAGLIPTIN HYDROCHLORIDE
  18. METFORMIN [Concomitant]
     Active Substance: METFORMIN HYDROCHLORIDE
  19. NAPROXEN. [Concomitant]
     Active Substance: NAPROXEN

REACTIONS (11)
  - Cough [Not Recovered/Not Resolved]
  - Nausea [Unknown]
  - Mass [Not Recovered/Not Resolved]
  - Vomiting [Recovered/Resolved]
  - Head discomfort [Not Recovered/Not Resolved]
  - Weight decreased [Unknown]
  - Ill-defined disorder [Unknown]
  - Decreased appetite [Not Recovered/Not Resolved]
  - Body mass index decreased [Unknown]
  - Pulmonary function test abnormal [Unknown]
  - Fatigue [Not Recovered/Not Resolved]

NARRATIVE: CASE EVENT DATE: 20150206
